APPROVED DRUG PRODUCT: INREBIC
Active Ingredient: FEDRATINIB HYDROCHLORIDE
Strength: EQ 100MG BASE
Dosage Form/Route: CAPSULE;ORAL
Application: N212327 | Product #001
Applicant: BRISTOL-MYERS SQUIBB CO
Approved: Aug 16, 2019 | RLD: Yes | RS: Yes | Type: RX

PATENTS:
Patent 10391094 | Expires: Jun 4, 2032
Patent 8138199 | Expires: Jun 30, 2028
Patent 11400092 | Expires: Sep 24, 2039
Patent 7825246 | Expires: Dec 16, 2026
Patent 7528143 | Expires: Nov 16, 2031

EXCLUSIVITY:
Code: ODE-259 | Date: Aug 16, 2026